FAERS Safety Report 7306977 (Version 2)
Quarter: 2017Q3

REPORT INFORMATION
  Report Type: Spontaneous
  Country: US (occurrence: US)
  Receive Date: 20100305
  Receipt Date: 20170928
  Transmission Date: 20171128
  Serious: Yes (Hospitalization, Disabling, Other)
  Sender: FDA-Public Use
  Company Number: US-PFIZER INC-2010024761

PATIENT
  Age: 47 Year
  Sex: Female
  Weight: 76 kg

DRUGS (3)
  1. CELEBREX [Suspect]
     Active Substance: CELECOXIB
     Dosage: 200 MG, 2X/DAY
     Dates: start: 20040301, end: 20040301
  2. BEXTRA [Suspect]
     Active Substance: VALDECOXIB
     Dosage: 10 MG, 1X/DAY
     Dates: start: 20040517, end: 20040520
  3. BEXTRA [Suspect]
     Active Substance: VALDECOXIB
     Dosage: 20 MG, 1X/DAY
     Dates: start: 20040521, end: 20040920

REACTIONS (3)
  - Cognitive disorder [Unknown]
  - Depression [Unknown]
  - Ischaemic stroke [Unknown]

NARRATIVE: CASE EVENT DATE: 20040608
